FAERS Safety Report 8850297 (Version 5)
Quarter: 2013Q2

REPORT INFORMATION
  Report Type: Report from Study
  Country: CA (occurrence: CA)
  Receive Date: 20121019
  Receipt Date: 20130503
  Transmission Date: 20140414
  Serious: Yes (Life-Threatening, Hospitalization, Other)
  Sender: FDA-Public Use
  Company Number: CA-ABBOTT-12P-028-0994267-00

PATIENT
  Age: 45 Year
  Sex: Female
  Weight: 86 kg

DRUGS (4)
  1. HUMIRA [Suspect]
     Indication: CROHN^S DISEASE
     Route: 058
     Dates: start: 20081009, end: 20120901
  2. CYANOCOBALAMIN [Concomitant]
     Indication: VITAMIN B12 DEFICIENCY
     Dates: start: 2004
  3. PANTOLOC [Concomitant]
     Indication: GASTROOESOPHAGEAL REFLUX DISEASE
     Dates: start: 200808, end: 200902
  4. PANTOLOC [Concomitant]
     Dates: start: 20090803

REACTIONS (4)
  - Acute myocardial infarction [Recovered/Resolved]
  - Subarachnoid haemorrhage [Recovered/Resolved]
  - Ruptured cerebral aneurysm [Recovered/Resolved]
  - Ventricular fibrillation [Recovered/Resolved]
